FAERS Safety Report 26112187 (Version 1)
Quarter: 2025Q4

REPORT INFORMATION
  Report Type: Spontaneous
  Country: US (occurrence: None)
  Receive Date: 20251201
  Receipt Date: 20251201
  Transmission Date: 20260118
  Serious: Yes (unspecified)
  Sender: FDA-CTU
  Company Number: None

PATIENT
  Age: 57 Year
  Sex: Male

DRUGS (1)
  1. NUCALA [Suspect]
     Active Substance: MEPOLIZUMAB
     Dosage: OTHER FREQUENCY : EVERY 4 WEEKS;?
     Route: 058

REACTIONS (3)
  - Pruritus [None]
  - Diarrhoea [None]
  - Contusion [None]

NARRATIVE: CASE EVENT DATE: 20251114
